FAERS Safety Report 9984014 (Version 1)
Quarter: 2014Q1

REPORT INFORMATION
  Report Type: Report from Study
  Country: US (occurrence: US)
  Receive Date: 20140304
  Receipt Date: 20140304
  Transmission Date: 20141002
  Serious: Yes (Hospitalization)
  Sender: FDA-Public Use
  Company Number: US-ABBVIE-13P-163-1087755-00

PATIENT
  Sex: Female
  Weight: 76.27 kg

DRUGS (8)
  1. HUMIRA [Suspect]
     Indication: RHEUMATOID ARTHRITIS
     Route: 058
     Dates: start: 2001, end: 201212
  2. HUMIRA [Suspect]
     Route: 058
     Dates: start: 20130417
  3. ARAVA [Concomitant]
     Indication: RHEUMATOID ARTHRITIS
  4. BENICAR [Concomitant]
     Indication: HYPERTENSION
  5. METOPROLOL [Concomitant]
     Indication: HYPERTENSION
  6. METFORMIN [Concomitant]
     Indication: DIABETES MELLITUS
  7. XANAX [Concomitant]
     Indication: DEPRESSION
  8. AMBIEN [Concomitant]
     Indication: INSOMNIA

REACTIONS (1)
  - Rheumatoid arthritis [Recovered/Resolved]
